FAERS Safety Report 19534365 (Version 3)
Quarter: 2021Q3

REPORT INFORMATION
  Report Type: Spontaneous
  Country: JP (occurrence: JP)
  Receive Date: 20210713
  Receipt Date: 20210722
  Transmission Date: 20211014
  Serious: Yes (Other)
  Sender: FDA-Public Use
  Company Number: JP-SA-2021SA228442

PATIENT
  Age: 70 Year
  Sex: Male

DRUGS (3)
  1. OXALIPLATIN. [Suspect]
     Active Substance: OXALIPLATIN
     Indication: GASTRIC CANCER
     Dosage: 170 MG, QCY (ON DAY 1)
  2. GIMERACIL;OTERACIL;TEGAFUR [Concomitant]
     Active Substance: GIMERACIL\OTERACIL\TEGAFUR
     Indication: GASTRIC CANCER
     Dosage: 120 MG, QD (ON DAYS 1?14)
  3. GIMERACIL;OTERACIL;TEGAFUR [Concomitant]
     Active Substance: GIMERACIL\OTERACIL\TEGAFUR
     Dosage: 120 MG, QD (ON DAYS 1?14)

REACTIONS (5)
  - Visual impairment [Recovered/Resolved]
  - Amaurosis fugax [Recovered/Resolved]
  - Blindness transient [Recovered/Resolved]
  - Visual field defect [Recovered/Resolved]
  - Ocular toxicity [Recovered/Resolved]
